FAERS Safety Report 17318084 (Version 1)
Quarter: 2020Q1

REPORT INFORMATION
  Report Type: Report from Study
  Country: US (occurrence: US)
  Receive Date: 20200124
  Receipt Date: 20200124
  Transmission Date: 20200409
  Serious: No
  Sender: FDA-Public Use
  Company Number: NVSC2020US011807

PATIENT
  Sex: Male

DRUGS (2)
  1. OLOPATADINE. [Suspect]
     Active Substance: OLOPATADINE
     Indication: PRODUCT USED FOR UNKNOWN INDICATION
     Dosage: UNK
     Route: 047
  2. OLOPATADINE. [Suspect]
     Active Substance: OLOPATADINE
     Dosage: UNK
     Route: 047
     Dates: start: 20170627

REACTIONS (2)
  - Ocular hyperaemia [Unknown]
  - Foreign body sensation in eyes [Unknown]
